FAERS Safety Report 7463059-3 (Version None)
Quarter: 2011Q2

REPORT INFORMATION
  Report Type: 
  Country: None (occurrence: None)
  Receive Date: 20110506
  Receipt Date: 20110401
  Transmission Date: 20111010
  Serious: Yes (Hospitalization)
  Sender: FDA-Public Use
  Company Number: US-BAYER-201035868NA

PATIENT
  Age: 35 Year
  Sex: Female
  Weight: 120.18 kg

DRUGS (8)
  1. DROSPIRENONE AND ETHINYL ESTRADIOL [Suspect]
     Indication: DYSMENORRHOEA
  2. CYMBALTA [Concomitant]
     Dosage: UNK
     Dates: start: 20080101, end: 20100101
  3. FLONASE [Concomitant]
     Dosage: UNK
     Dates: start: 20080101, end: 20100101
  4. ADVAIR DISKUS 100/50 [Concomitant]
  5. PRILOSEC [Concomitant]
  6. ZYRTEC [Concomitant]
  7. SINGULAIR [Concomitant]
     Dosage: UNK
     Dates: start: 20080101, end: 20100101
  8. DROSPIRENONE AND ETHINYL ESTRADIOL [Suspect]
     Indication: CONTRACEPTION
     Dosage: UNK UNK, QD
     Dates: start: 20080501, end: 20081001

REACTIONS (5)
  - CHEST PAIN [None]
  - DYSPNOEA [None]
  - THROMBOSIS [None]
  - PULMONARY EMBOLISM [None]
  - PULMONARY HYPERTENSION [None]
